FAERS Safety Report 11671264 (Version 1)
Quarter: 2015Q4

REPORT INFORMATION
  Report Type: Spontaneous
  Country: AR (occurrence: AR)
  Receive Date: 20151028
  Receipt Date: 20151028
  Transmission Date: 20160304
  Serious: Yes (Hospitalization)
  Sender: FDA-Public Use
  Company Number: AR-BEH-2015051979

PATIENT
  Age: 9 Year
  Sex: Female
  Weight: 23 kg

DRUGS (1)
  1. PRIVIGEN [Suspect]
     Active Substance: HUMAN IMMUNOGLOBULIN G
     Indication: IMMUNOMODULATORY THERAPY
     Dosage: 2G/KG/DOSE
     Route: 042
     Dates: start: 20150601, end: 20150601

REACTIONS (6)
  - Respiratory distress [Recovered/Resolved]
  - Hypoxia [Recovered/Resolved]
  - Anuria [Recovered/Resolved]
  - Renal failure [Recovered/Resolved]
  - Transfusion-related acute lung injury [Recovered/Resolved]
  - Multi-organ failure [Recovered/Resolved]

NARRATIVE: CASE EVENT DATE: 20150601
